FAERS Safety Report 25631210 (Version 2)
Quarter: 2025Q3

REPORT INFORMATION
  Report Type: Spontaneous
  Country: JP (occurrence: JP)
  Receive Date: 20250801
  Receipt Date: 20250829
  Transmission Date: 20251021
  Serious: Yes (Other)
  Sender: BIOGEN
  Company Number: JP-BIOGEN-2025BI01318605

PATIENT
  Age: 58 Year
  Sex: Male

DRUGS (1)
  1. TECFIDERA [Suspect]
     Active Substance: DIMETHYL FUMARATE
     Indication: Myelin oligodendrocyte glycoprotein antibody-associated disease
     Route: 050
     Dates: start: 202203, end: 202307

REACTIONS (2)
  - Myelitis [Recovered/Resolved with Sequelae]
  - Unintentional use for unapproved indication [Unknown]

NARRATIVE: CASE EVENT DATE: 20230701
